FAERS Safety Report 22141553 (Version 1)
Quarter: 2023Q1

REPORT INFORMATION
  Report Type: Spontaneous
  Country: US (occurrence: US)
  Receive Date: 20230327
  Receipt Date: 20230327
  Transmission Date: 20230417
  Serious: No
  Sender: FDA-Public Use
  Company Number: US-PFIZER INC-202300126988

PATIENT
  Age: 58 Year
  Sex: Female

DRUGS (10)
  1. PAXLOVID [Suspect]
     Active Substance: NIRMATRELVIR\RITONAVIR
     Indication: COVID-19 treatment
     Dosage: UNK
     Dates: start: 20230319
  2. ATORVASTATIN [Concomitant]
     Active Substance: ATORVASTATIN
     Dosage: UNK
  3. ESCITALOPRAM [Concomitant]
     Active Substance: ESCITALOPRAM OXALATE
     Dosage: UNK
  4. OLMESARTAN [Concomitant]
     Active Substance: OLMESARTAN
     Dosage: UNK
  5. JARDIANCE [Concomitant]
     Active Substance: EMPAGLIFLOZIN
     Dosage: UNK
  6. ESTRADIOL [Concomitant]
     Active Substance: ESTRADIOL
     Dosage: UNK
  7. CRANBERRY [Concomitant]
     Active Substance: CRANBERRY
     Dosage: UNK
  8. VITAMIN D3 [Concomitant]
     Active Substance: CHOLECALCIFEROL
     Dosage: UNK
  9. NATURE MADE VITAMIN B-12 [Concomitant]
     Dosage: UNK
  10. BIOTIN [Concomitant]
     Active Substance: BIOTIN
     Dosage: UNK

REACTIONS (2)
  - Dysgeusia [Not Recovered/Not Resolved]
  - Dry mouth [Not Recovered/Not Resolved]

NARRATIVE: CASE EVENT DATE: 20230320
